FAERS Safety Report 8916087 (Version 2)
Quarter: 2013Q1

REPORT INFORMATION
  Report Type: Spontaneous
  Country: US (occurrence: US)
  Receive Date: 20121119
  Receipt Date: 20130124
  Transmission Date: 20140127
  Serious: No
  Sender: FDA-Public Use
  Company Number: US-B.I. PHARMACEUTICALS,INC./RIDGEFIELD-2012-BI-00556BP

PATIENT
  Sex: Female
  Weight: 82 kg

DRUGS (20)
  1. SPIRIVA [Suspect]
     Indication: CHRONIC OBSTRUCTIVE PULMONARY DISEASE
     Dosage: 18 MCG
     Route: 055
     Dates: start: 2005
  2. POTASSIUM [Concomitant]
     Indication: HYPOKALAEMIA
     Dosage: 1500 MG
     Route: 048
  3. WARFARIN [Concomitant]
     Indication: CARDIAC VALVE DISEASE
     Dosage: 5 MG
     Route: 048
  4. VITAMIN B12 [Concomitant]
     Dosage: 1000 MG
     Route: 048
  5. PROAIR [Concomitant]
     Indication: ASTHMA
     Route: 055
  6. SPIRONOLACTONE [Concomitant]
     Dosage: 25 MG
     Route: 048
  7. ALLOPURINOL [Concomitant]
     Indication: GOUT
     Dosage: 200 MG
     Route: 048
  8. FLUTICASONE [Concomitant]
     Dosage: 16 G
     Route: 055
  9. CALCIUM [Concomitant]
     Dosage: 500 MG
     Route: 048
  10. OMEPRAZOLE [Concomitant]
     Dosage: 40 MG
     Route: 048
  11. TYLENOL [Concomitant]
     Indication: PAIN IN EXTREMITY
     Dosage: 2000 MG
     Route: 048
  12. FUROSEMIDE [Concomitant]
     Dosage: 160 MG
     Route: 048
  13. AMIODARONE [Concomitant]
     Dosage: 200 MG
     Route: 048
     Dates: start: 2009
  14. SENNA [Concomitant]
     Indication: CONSTIPATION
     Dosage: 17.2 MG
     Route: 048
  15. ADVAIR [Concomitant]
     Indication: CHRONIC OBSTRUCTIVE PULMONARY DISEASE
     Route: 055
  16. CARVEDILOL [Concomitant]
     Indication: HYPERTENSION
     Dosage: 25 MG
     Route: 048
  17. LEVOTHYROXINE [Concomitant]
     Indication: HYPOTHYROIDISM
     Dosage: 50 MCG
     Route: 048
  18. IRON [Concomitant]
     Dosage: 65 MG
     Route: 048
  19. FOLIC ACID [Concomitant]
     Dosage: 400 MCG
     Route: 048
  20. ASPIRIN [Concomitant]
     Dosage: 81 MG
     Route: 048

REACTIONS (3)
  - Tremor [Not Recovered/Not Resolved]
  - Reading disorder [Not Recovered/Not Resolved]
  - Product quality issue [Recovered/Resolved]
